FAERS Safety Report 6269535-3 (Version None)
Quarter: 2009Q3

REPORT INFORMATION
  Report Type: 
  Country: None (occurrence: None)
  Receive Date: 20090715
  Receipt Date: 20090519
  Transmission Date: 20100115
  Serious: No
  Sender: FDA-Public Use
  Company Number: US-TYCO HEALTHCARE/MALLINCKRODT-T200901080

PATIENT
  Age: 46 Year
  Sex: Female
  Weight: 76.19 kg

DRUGS (7)
  1. OXYCODONE HCL [Suspect]
     Indication: PAIN
     Dosage: 5 MG, FIVE TIMES A DAY
     Route: 048
     Dates: start: 20090201
  2. FENTANYL-100 [Suspect]
     Indication: PAIN
     Dosage: 75 UG, Q 48 HOURS
     Route: 062
     Dates: start: 20020101
  3. CLONIDINE [Concomitant]
     Indication: HYPERHIDROSIS
     Dosage: 5 MG, BID
     Route: 048
  4. TEGRETOL [Concomitant]
     Indication: EPILEPSY
     Dosage: 600 MG, BID
     Route: 048
  5. ZOLOFT [Concomitant]
     Dosage: 50 MG, QD
     Route: 048
  6. VALIUM [Concomitant]
     Indication: PAIN
     Dosage: 5 MG, PRN AT HS
     Route: 048
  7. VALIUM [Concomitant]
     Indication: SLEEP DISORDER

REACTIONS (2)
  - DRUG EFFECT DECREASED [None]
  - DRUG SCREEN NEGATIVE [None]
